FAERS Safety Report 9221921 (Version 1)
Quarter: 2013Q1

REPORT INFORMATION
  Report Type: Spontaneous
  Country: US (occurrence: None)
  Receive Date: 20120910
  Receipt Date: 20120910
  Transmission Date: 20140127
  Serious: No
  Sender: FDA-Public Use
  Company Number: 1205USA02614

PATIENT
  Age: 58 Year
  Sex: Female

DRUGS (1)
  1. ZIOPTAN (TALLUPROST) EYE DROPS, SOLUTION [Suspect]
     Indication: GLAUCOMA
     Route: 047
     Dates: start: 20120504, end: 20120506

REACTIONS (4)
  - Foreign body sensation in eyes [None]
  - Ocular hyperaemia [None]
  - Lacrimation increased [None]
  - Eye pruritus [None]
